FAERS Safety Report 7559067-4 (Version None)
Quarter: 2011Q2

REPORT INFORMATION
  Report Type: 
  Country: None (occurrence: None)
  Receive Date: 20110613
  Receipt Date: 20110530
  Transmission Date: 20111010
  Serious: Yes (Hospitalization)
  Sender: FDA-Public Use
  Company Number: DE-ACCORD-009480

PATIENT
  Age: 24 Year
  Sex: Female

DRUGS (1)
  1. MITOMYCIN [Suspect]
     Indication: OVARIAN EPITHELIAL CANCER
     Dosage: INTRAPERITONEAL
     Route: 033

REACTIONS (7)
  - ALANINE AMINOTRANSFERASE INCREASED [None]
  - THROMBOCYTOPENIA [None]
  - OFF LABEL USE [None]
  - GAMMA-GLUTAMYLTRANSFERASE INCREASED [None]
  - LARGE INTESTINE PERFORATION [None]
  - ASPARTATE AMINOTRANSFERASE INCREASED [None]
  - HEPATIC ENZYME INCREASED [None]
